FAERS Safety Report 13305128 (Version 1)
Quarter: 2017Q1

REPORT INFORMATION
  Report Type: Spontaneous
  Country: US (occurrence: US)
  Receive Date: 20170307
  Receipt Date: 20170307
  Transmission Date: 20170428
  Serious: No
  Sender: FDA-Public Use
  Company Number: None

PATIENT
  Age: 78 Year
  Sex: Female

DRUGS (1)
  1. ENBREL [Suspect]
     Active Substance: ETANERCEPT
     Indication: RHEUMATOID ARTHRITIS
     Route: 058
     Dates: start: 20160625

REACTIONS (5)
  - Insomnia [None]
  - Chest pain [None]
  - Loss of consciousness [None]
  - Headache [None]
  - Hypertension [None]

NARRATIVE: CASE EVENT DATE: 20170304
